FAERS Safety Report 7201576-1 (Version None)
Quarter: 2010Q4

REPORT INFORMATION
  Report Type: 
  Country: None (occurrence: None)
  Receive Date: 20101229
  Receipt Date: 20101215
  Transmission Date: 20110411
  Serious: Yes (Hospitalization)
  Sender: FDA-Public Use
  Company Number: GB-JNJFOC-NSADSS2002028125

PATIENT
  Sex: Male

DRUGS (5)
  1. MICONAZOLE [Suspect]
     Indication: FUNGAL INFECTION
     Route: 003
  2. WARFARIN [Interacting]
     Indication: ATRIAL FIBRILLATION
     Route: 048
  3. ATENOLOL [Concomitant]
     Route: 048
  4. ISOSORBIDE MONONITRATE [Concomitant]
     Route: 048
  5. DILTIAZEM [Concomitant]
     Route: 048

REACTIONS (2)
  - DRUG INTERACTION [None]
  - INTERNATIONAL NORMALISED RATIO INCREASED [None]
